FAERS Safety Report 19775675 (Version 2)
Quarter: 2021Q3

REPORT INFORMATION
  Report Type: Spontaneous
  Country: US (occurrence: US)
  Receive Date: 20210902
  Receipt Date: 20210909
  Transmission Date: 20211014
  Serious: Yes (Other)
  Sender: FDA-Public Use
  Company Number: US-BEH-2021135505

PATIENT
  Sex: Female

DRUGS (2)
  1. HIZENTRA [Suspect]
     Active Substance: HUMAN IMMUNOGLOBULIN G
     Indication: COMBINED IMMUNODEFICIENCY
     Dosage: 14 GRAM, QW
     Route: 058
     Dates: start: 20190809
  2. HIZENTRA [Suspect]
     Active Substance: HUMAN IMMUNOGLOBULIN G
     Indication: BEHCET^S SYNDROME

REACTIONS (8)
  - Feeling cold [Unknown]
  - Insurance issue [Unknown]
  - Asthenopia [Unknown]
  - Pharyngeal swelling [Unknown]
  - No adverse event [Unknown]
  - Off label use [Unknown]
  - Rash vesicular [Unknown]
  - Therapy interrupted [Unknown]
